FAERS Safety Report 16887251 (Version 1)
Quarter: 2019Q4

REPORT INFORMATION
  Report Type: Spontaneous
  Country: US (occurrence: US)
  Receive Date: 20191004
  Receipt Date: 20191004
  Transmission Date: 20200122
  Serious: Yes (Hospitalization, Other)
  Sender: FDA-Public Use
  Company Number: US-ELI_LILLY_AND_COMPANY-US201909012268

PATIENT
  Sex: Female

DRUGS (2)
  1. METFORMIN [Suspect]
     Active Substance: METFORMIN HYDROCHLORIDE
     Indication: PRODUCT USED FOR UNKNOWN INDICATION
     Dosage: UNK, UNKNOWN
     Route: 065
  2. HUMULIN R [Suspect]
     Active Substance: INSULIN HUMAN
     Indication: TYPE 2 DIABETES MELLITUS
     Dosage: UNK, UNKNOWN
     Route: 065

REACTIONS (21)
  - Malaise [Unknown]
  - Visual impairment [Unknown]
  - Fatigue [Unknown]
  - Tremor [Unknown]
  - Blood pressure abnormal [Unknown]
  - Glycosylated haemoglobin increased [Recovering/Resolving]
  - Urinary incontinence [Unknown]
  - Mobility decreased [Unknown]
  - Cerebrovascular accident [Unknown]
  - Overweight [Not Recovered/Not Resolved]
  - Discomfort [Unknown]
  - Nausea [Unknown]
  - Malaise [Unknown]
  - Blood glucose increased [Unknown]
  - Multiple sclerosis [Unknown]
  - Bladder dysfunction [Unknown]
  - Diarrhoea [Unknown]
  - Muscle injury [Unknown]
  - Central nervous system lesion [Unknown]
  - Pain in extremity [Unknown]
  - Peripheral swelling [Unknown]

NARRATIVE: CASE EVENT DATE: 2013
